FAERS Safety Report 7073303-2 (Version None)
Quarter: 2010Q4

REPORT INFORMATION
  Report Type: 
  Country: None (occurrence: None)
  Receive Date: 20101028
  Receipt Date: 20101028
  Transmission Date: 20110411
  Serious: Yes (Other)
  Sender: FDA-Public Use
  Company Number: None

PATIENT
  Age: 39 Year
  Sex: Female
  Weight: 63.5036 kg

DRUGS (2)
  1. LEVAQUIN [Suspect]
     Indication: BRONCHITIS
     Dosage: ONE TABLET ONCE A DAY PO
     Route: 048
     Dates: start: 20101018, end: 20101024
  2. LEVAQUIN [Suspect]
     Indication: SINUSITIS
     Dosage: ONE TABLET ONCE A DAY PO
     Route: 048
     Dates: start: 20101018, end: 20101024

REACTIONS (7)
  - ANXIETY [None]
  - DEPRESSION [None]
  - FEAR [None]
  - INSOMNIA [None]
  - NIGHTMARE [None]
  - PARANOIA [None]
  - SUICIDAL IDEATION [None]
